FAERS Safety Report 24571388 (Version 2)
Quarter: 2024Q4

REPORT INFORMATION
  Report Type: Spontaneous
  Country: GB (occurrence: GB)
  Receive Date: 20241101
  Receipt Date: 20241125
  Transmission Date: 20250115
  Serious: No
  Sender: CELLTRION
  Company Number: GB-CELLTRION INC.-2024GB026468

PATIENT

DRUGS (2)
  1. YUFLYMA [Suspect]
     Active Substance: ADALIMUMAB-AATY
     Indication: Crohn^s disease
     Dosage: 40 MG PEN PK2
     Route: 058
     Dates: start: 202405
  2. YUFLYMA [Suspect]
     Active Substance: ADALIMUMAB-AATY
     Dosage: 1X 40MG PFP EVERY WEEK
     Route: 058

REACTIONS (2)
  - Therapeutic product effect decreased [Unknown]
  - Off label use [Unknown]
